FAERS Safety Report 11890120 (Version 1)
Quarter: 2016Q1

REPORT INFORMATION
  Report Type: Spontaneous
  Country: US (occurrence: US)
  Receive Date: 20160105
  Receipt Date: 20160105
  Transmission Date: 20160526
  Serious: No
  Sender: FDA-Public Use
  Company Number: US-HALOZYME THERAPEUTICS, INC.-2015-US-HYL-00129

PATIENT
  Sex: Male

DRUGS (2)
  1. HYLENEX RECOMBINANT [Suspect]
     Active Substance: HYALURONIDASE (HUMAN RECOMBINANT)
     Indication: POST PROCEDURAL COMPLICATION
     Dosage: UNK
     Dates: start: 201501, end: 201501
  2. JUVEDERM [Suspect]
     Active Substance: HYALURONIC ACID
     Indication: SKIN COSMETIC PROCEDURE
     Dosage: UNK
     Dates: start: 201410

REACTIONS (1)
  - Injection site discolouration [Unknown]
